FAERS Safety Report 23332765 (Version 1)
Quarter: 2023Q4

REPORT INFORMATION
  Report Type: Spontaneous
  Country: US (occurrence: None)
  Receive Date: 20231222
  Receipt Date: 20231222
  Transmission Date: 20240110
  Serious: Yes (Hospitalization)
  Sender: FDA-Public Use
  Company Number: None

PATIENT
  Sex: Female

DRUGS (21)
  1. MYCOPHENOLIC ACID [Suspect]
     Active Substance: MYCOPHENOLIC ACID
     Indication: Systemic lupus erythematosus
     Dosage: RX 2: TAKE 2 TABLETS BY MOUTH EVERY MORNING WITH BREAKFAST AND 2 TABLETS IN THE EVENING WITH?DINNER?
     Route: 048
     Dates: start: 20230407
  2. ATORVASTATIN [Concomitant]
     Active Substance: ATORVASTATIN
  3. BACTRIM DS [Concomitant]
  4. BUMETANIDE [Concomitant]
  5. CLARITIN [Concomitant]
     Active Substance: LORATADINE
  6. COLCHICINE [Concomitant]
     Active Substance: COLCHICINE
  7. FLONASE ALGY SPR [Concomitant]
  8. FOLIC ACID [Concomitant]
     Active Substance: FOLIC ACID
  9. LISINOPRIL [Concomitant]
     Active Substance: LISINOPRIL
  10. MAGNESIUM [Concomitant]
  11. NIFEDIPINE [Concomitant]
     Active Substance: NIFEDIPINE
  12. NOVOLOG [Concomitant]
     Active Substance: INSULIN ASPART
  13. OMEPRAZOLE [Concomitant]
     Active Substance: OMEPRAZOLE
  14. ORENCIA [Concomitant]
     Active Substance: ABATACEPT
  15. CLCKJCT 4-4 [Concomitant]
  16. PLAQUENIL [Concomitant]
     Active Substance: HYDROXYCHLOROQUINE SULFATE
  17. POT CHLORIDE [Concomitant]
  18. PREDNISONE [Concomitant]
     Active Substance: PREDNISONE
  19. SPIRONOLOACT [Concomitant]
  20. TRAMADOL HCL [Concomitant]
     Active Substance: TRAMADOL HYDROCHLORIDE
  21. VITAMIN B12 [Concomitant]
     Active Substance: CYANOCOBALAMIN

REACTIONS (1)
  - Cardiac operation [None]
